FAERS Safety Report 9395590 (Version 1)
Quarter: 2013Q3

REPORT INFORMATION
  Report Type: Spontaneous
  Country: FR (occurrence: FR)
  Receive Date: 20130711
  Receipt Date: 20130711
  Transmission Date: 20140515
  Serious: Yes (Hospitalization)
  Sender: FDA-Public Use
  Company Number: FR-GALDERMA-FR13002124

PATIENT
  Age: 39 Year
  Sex: Female

DRUGS (5)
  1. ROZEX (METRONIDAZOLE) [Suspect]
     Indication: RASH PRURITIC
     Dosage: 0.75%
     Route: 061
     Dates: start: 20130510, end: 20130525
  2. TOLEXINE [Suspect]
     Indication: RASH PRURITIC
     Route: 048
     Dates: start: 20130510, end: 20130525
  3. AERIUS [Suspect]
     Indication: RASH PRURITIC
     Route: 048
     Dates: start: 20130510, end: 20130525
  4. FLIXOVATE [Suspect]
     Indication: RASH PRURITIC
     Route: 061
     Dates: start: 20130510, end: 20130525
  5. LIPIKAR [Suspect]
     Indication: RASH PRURITIC
     Route: 061
     Dates: start: 20130510, end: 20130525

REACTIONS (4)
  - Agranulocytosis [Recovering/Resolving]
  - Neutropenia [Recovering/Resolving]
  - Off label use [Recovered/Resolved]
  - Toxicity to various agents [None]
